FAERS Safety Report 4322394-8 (Version None)
Quarter: 2004Q1

REPORT INFORMATION
  Report Type: 
  Country: None (occurrence: None)
  Receive Date: 20040324
  Receipt Date: 20030715
  Transmission Date: 20041129
  Serious: Yes (Death, Hospitalization)
  Sender: FDA-Public Use
  Company Number: PHNU2003DE02699

PATIENT
  Age: 72 Year
  Sex: Male
  Weight: 73 kg

DRUGS (4)
  1. VERTIGO-VOMEX [Concomitant]
     Indication: VERTIGO
     Route: 048
     Dates: start: 20030701, end: 20030901
  2. CIBADREX [Suspect]
     Indication: HYPERTENSION
     Dates: start: 20030710, end: 20030714
  3. ALLOPURINOL [Concomitant]
     Indication: HYPERURICAEMIA
     Dosage: 300 MG/D
     Route: 048
     Dates: end: 20030714
  4. ASPIRIN [Concomitant]

REACTIONS (5)
  - BLINDNESS CORTICAL [None]
  - CEREBRAL ISCHAEMIA [None]
  - PNEUMONIA ASPIRATION [None]
  - RETINOPATHY [None]
  - VISUAL ACUITY REDUCED [None]
